FAERS Safety Report 13296710 (Version 4)
Quarter: 2019Q2

REPORT INFORMATION
  Report Type: Spontaneous
  Country: US (occurrence: US)
  Receive Date: 20170306
  Receipt Date: 20190522
  Transmission Date: 20190711
  Serious: Yes (Death, Hospitalization, Other)
  Sender: FDA-Public Use
  Company Number: US-ASTRAZENECA-2017SE22198

PATIENT
  Age: 92 Year
  Sex: Male
  Weight: 83 kg

DRUGS (8)
  1. IRON PLUS [Concomitant]
  2. FLOMAX [Suspect]
     Active Substance: TAMSULOSIN HYDROCHLORIDE
     Route: 065
  3. ENZALUTAMIDE [Suspect]
     Active Substance: ENZALUTAMIDE
     Indication: PROSTATE CANCER
     Route: 048
     Dates: start: 201506
  4. LYRICA [Suspect]
     Active Substance: PREGABALIN
     Route: 065
  5. VITAMIN D [Concomitant]
     Active Substance: VITAMIN D NOS
  6. FISH OIL [Concomitant]
     Active Substance: FISH OIL
  7. ASCORBIC ACID. [Concomitant]
     Active Substance: ASCORBIC ACID
  8. PRILOSEC [Suspect]
     Active Substance: OMEPRAZOLE MAGNESIUM
     Route: 048

REACTIONS (3)
  - Visual impairment [Not Recovered/Not Resolved]
  - Pneumonia [Fatal]
  - Prostate cancer [Not Recovered/Not Resolved]
